FAERS Safety Report 4557081-4 (Version None)
Quarter: 2005Q1

REPORT INFORMATION
  Report Type: 
  Country: None (occurrence: None)
  Receive Date: 20050120
  Receipt Date: 20050117
  Transmission Date: 20050727
  Serious: Yes (Other)
  Sender: FDA-Public Use
  Company Number: GB-GLAXOSMITHKLINE-B0364815A

PATIENT
  Age: 49 Year
  Sex: Female
  Weight: 17 kg

DRUGS (5)
  1. ZYBAN [Suspect]
     Indication: SMOKING CESSATION THERAPY
     Dosage: 150MG TWICE PER DAY
     Route: 048
     Dates: start: 20041210
  2. CELECOXIB [Concomitant]
     Dosage: 200MG PER DAY
     Route: 048
  3. ACETAMINOPHEN [Concomitant]
     Route: 065
  4. CO-PROXAMOL [Concomitant]
     Route: 065
  5. LISINOPRIL [Concomitant]
     Route: 065

REACTIONS (1)
  - RENAL COLIC [None]
